FAERS Safety Report 26017463 (Version 6)
Quarter: 2025Q4

REPORT INFORMATION
  Report Type: Report from Study
  Country: EU (occurrence: EU)
  Receive Date: 20251110
  Receipt Date: 20251204
  Transmission Date: 20260117
  Serious: Yes (Life-Threatening)
  Sender: ROCHE
  Company Number: EU-ROCHE-10000424203

PATIENT
  Age: 69 Year
  Sex: Female

DRUGS (5)
  1. FARICIMAB [Suspect]
     Active Substance: FARICIMAB
     Indication: Neovascular age-related macular degeneration
     Dosage: DOSE LAST STUDY DRUG ADMIN PRIOR AE IS 6 MG?TOTAL VOLUME PRIOR AE IS 0.05 ML? MOST RECENT DOSE OF ST
     Route: 050
     Dates: start: 20250423
  2. MONTELUKAST [Concomitant]
     Active Substance: MONTELUKAST
     Indication: Seasonal allergy
     Dosage: GIVEN FOR PROPHYLAXIS IS YES
  3. MOMETASONE [Concomitant]
     Active Substance: MOMETASONE
     Indication: Seasonal allergy
     Dosage: GIVEN FOR PROPHYLAXIS IS YES
  4. EFEROX 75 UG [Concomitant]
     Dosage: EFEROX 75 UG
  5. TRIMBOW 172 UG/5 UG/9 UG [Concomitant]
     Indication: Asthma

REACTIONS (3)
  - Meningitis [Recovering/Resolving]
  - Malaise [Recovered/Resolved]
  - Headache [Recovered/Resolved]

NARRATIVE: CASE EVENT DATE: 20250624
